FAERS Safety Report 4516934-3 (Version None)
Quarter: 2004Q4

REPORT INFORMATION
  Report Type: 
  Country: None (occurrence: None)
  Receive Date: 20041130
  Receipt Date: 20041122
  Transmission Date: 20050328
  Serious: Yes (Hospitalization)
  Sender: FDA-Public Use
  Company Number: 200413203GDS

PATIENT
  Age: 54 Year
  Sex: Male

DRUGS (1)
  1. ASPIRIN [Suspect]
     Indication: PAIN
     Dosage: 500 MG, ONCE, ORAL
     Route: 048
     Dates: start: 20041114

REACTIONS (6)
  - ANAEMIA [None]
  - DUODENAL ULCER [None]
  - GASTRIC ULCER [None]
  - HEAD INJURY [None]
  - MELAENA [None]
  - SYNCOPE [None]
